FAERS Safety Report 4627080-2 (Version None)
Quarter: 2005Q1

REPORT INFORMATION
  Report Type: 
  Country: None (occurrence: None)
  Receive Date: 20050331
  Receipt Date: 20050316
  Transmission Date: 20050727
  Serious: Yes (Other)
  Sender: FDA-Public Use
  Company Number: P200500006

PATIENT
  Age: 90 Year
  Sex: Male

DRUGS (3)
  1. PLENAXIS [Suspect]
     Indication: PROSTATE CANCER
     Dosage: 100 MG, SINGLE, INTRAMUSCULAR
     Route: 030
     Dates: start: 20050303, end: 20050303
  2. ASPIRIN [Concomitant]
  3. CALCIUM W/VITAMIN D NOS (VITAMIN D NOS, CALCIUM) [Concomitant]

REACTIONS (6)
  - ERYTHEMA [None]
  - INDURATION [None]
  - INJECTION SITE MASS [None]
  - PRURITUS [None]
  - RASH [None]
  - URTICARIA [None]
